FAERS Safety Report 7488384-1 (Version None)
Quarter: 2011Q2

REPORT INFORMATION
  Report Type: 
  Country: None (occurrence: None)
  Receive Date: 20110518
  Receipt Date: 20110511
  Transmission Date: 20111010
  Serious: Yes (Hospitalization)
  Sender: FDA-Public Use
  Company Number: BR-US-EMD SERONO, INC.-7058269

PATIENT
  Sex: Male

DRUGS (3)
  1. ACETAMINOPHEN [Concomitant]
  2. REBIF [Suspect]
     Indication: RELAPSING-REMITTING MULTIPLE SCLEROSIS
     Dates: start: 20100608
  3. REBIF [Suspect]

REACTIONS (6)
  - PARAESTHESIA [None]
  - VISION BLURRED [None]
  - CENTRAL NERVOUS SYSTEM LESION [None]
  - FATIGUE [None]
  - MUSCULAR WEAKNESS [None]
  - INJECTION SITE ERYTHEMA [None]
